FAERS Safety Report 17207652 (Version 1)
Quarter: 2019Q4

REPORT INFORMATION
  Report Type: Spontaneous
  Country: CA (occurrence: CA)
  Receive Date: 20191227
  Receipt Date: 20191227
  Transmission Date: 20200122
  Serious: Yes (Other)
  Sender: FDA-Public Use
  Company Number: CA-PFIZER INC-2019555387

PATIENT
  Age: 44 Year
  Sex: Female

DRUGS (3)
  1. CEFTRIAXONE SODIUM. [Suspect]
     Active Substance: CEFTRIAXONE SODIUM
     Indication: ENDOCARDITIS
     Dosage: 2000 MG, 1X/DAY
     Route: 042
  2. IRON [Concomitant]
     Active Substance: IRON
     Dosage: UNK
  3. MAGNESIUM [Concomitant]
     Active Substance: MAGNESIUM
     Dosage: UNK

REACTIONS (3)
  - Chest pain [Recovered/Resolved]
  - Agranulocytosis [Recovered/Resolved]
  - Musculoskeletal stiffness [Recovered/Resolved]
